FAERS Safety Report 14603258 (Version 1)
Quarter: 2018Q1

REPORT INFORMATION
  Report Type: Spontaneous
  Country: US (occurrence: US)
  Receive Date: 20180306
  Receipt Date: 20180306
  Transmission Date: 20180509
  Serious: Yes (Hospitalization)
  Sender: FDA-Public Use
  Company Number: US-JNJFOC-20180303291

PATIENT
  Age: 45 Year
  Sex: Female
  Weight: 120.5 kg

DRUGS (1)
  1. INVOKANA [Suspect]
     Active Substance: CANAGLIFLOZIN
     Indication: PRODUCT USED FOR UNKNOWN INDICATION
     Route: 048
     Dates: start: 20160302

REACTIONS (3)
  - Skin ulcer [Unknown]
  - Neuropathic arthropathy [Unknown]
  - Leg amputation [Unknown]

NARRATIVE: CASE EVENT DATE: 2017
